FAERS Safety Report 8794123 (Version 2)
Quarter: 2013Q3

REPORT INFORMATION
  Report Type: Spontaneous
  Country: US (occurrence: US)
  Receive Date: 20120918
  Receipt Date: 20130925
  Transmission Date: 20140515
  Serious: No
  Sender: FDA-Public Use
  Company Number: US-BIOGENIDEC-2012BI037405

PATIENT
  Age: 34 Year
  Sex: Female

DRUGS (3)
  1. TYSABRI [Suspect]
     Indication: MULTIPLE SCLEROSIS
     Route: 042
     Dates: start: 20120420
  2. LEVOTHYROXINE [Concomitant]
     Indication: THYROID DISORDER
     Dates: start: 2011
  3. BETASERON [Concomitant]
     Indication: MULTIPLE SCLEROSIS

REACTIONS (14)
  - Memory impairment [Not Recovered/Not Resolved]
  - Stress [Not Recovered/Not Resolved]
  - Anxiety [Not Recovered/Not Resolved]
  - Hypoaesthesia [Recovered/Resolved]
  - Weight decreased [Recovered/Resolved]
  - Paraesthesia [Not Recovered/Not Resolved]
  - Middle insomnia [Not Recovered/Not Resolved]
  - Facial pain [Recovered/Resolved]
  - Depression [Not Recovered/Not Resolved]
  - Crying [Recovered/Resolved]
  - Ear congestion [Recovered/Resolved]
  - Ear infection [Unknown]
  - Dizziness [Recovered/Resolved]
  - Headache [Recovered/Resolved]
